FAERS Safety Report 25167672 (Version 3)
Quarter: 2025Q4

REPORT INFORMATION
  Report Type: Spontaneous
  Country: US (occurrence: US)
  Receive Date: 20250407
  Receipt Date: 20251029
  Transmission Date: 20260117
  Serious: Yes (Other)
  Sender: PFIZER
  Company Number: US-PFIZER INC-PV202500008636

PATIENT
  Age: 65 Year
  Sex: Female
  Weight: 90.9 kg

DRUGS (2)
  1. MEKTOVI [Suspect]
     Active Substance: BINIMETINIB
     Dosage: 45 MG, 2X/DAY, (EVERY 12 H D1-28/15 MG TAKE 3 TABLETS TWICE DAILY FOR 30 DAYS/TAKE 3 TABS BID D1-30)
     Route: 048
  2. BRAFTOVI [Suspect]
     Active Substance: ENCORAFENIB
     Dosage: 450 MG, 1X/DAY (D1-28/75 MG TAKE 6 CAPSULES DAILY FOR 30 DAYS/TAKE 6 CAP (450 MG) DAILY)
     Route: 048

REACTIONS (2)
  - Cerebrovascular accident [Unknown]
  - Product prescribing issue [Unknown]
